FAERS Safety Report 18523283 (Version 1)
Quarter: 2020Q4

REPORT INFORMATION
  Report Type: Spontaneous
  Country: PL (occurrence: PL)
  Receive Date: 20201119
  Receipt Date: 20201119
  Transmission Date: 20210114
  Serious: Yes (Hospitalization)
  Sender: FDA-Public Use
  Company Number: PL-BAYER-2020-247084

PATIENT
  Age: 87 Year
  Sex: Female

DRUGS (12)
  1. AMOXICILLIN + CLAVULANIC ACID [Concomitant]
     Active Substance: AMOXICILLIN\CLAVULANIC ACID
     Indication: COVID-19
  2. FOLIC ACID. [Concomitant]
     Active Substance: FOLIC ACID
  3. BISOPROLOL [Concomitant]
     Active Substance: BISOPROLOL
  4. BINOCRIT [Concomitant]
     Active Substance: ERYTHROPOIETIN
     Indication: COVID-19
  5. FRAXIPARINE [Concomitant]
     Active Substance: NADROPARIN CALCIUM
     Indication: COVID-19
  6. DULOXETINE. [Concomitant]
     Active Substance: DULOXETINE
  7. PARACETAMOL [Concomitant]
     Active Substance: ACETAMINOPHEN
  8. CHLOROQUINE. [Suspect]
     Active Substance: CHLOROQUINE
     Indication: COVID-19
     Dosage: UNK
     Dates: start: 202004
  9. PIPERACILLIN AND TAZOBACTAM [Concomitant]
     Active Substance: PIPERACILLIN SODIUM\TAZOBACTAM SODIUM
     Indication: COVID-19
  10. ATORVASTATIN [Concomitant]
     Active Substance: ATORVASTATIN
  11. KALETRA [Concomitant]
     Active Substance: LOPINAVIR\RITONAVIR
     Indication: COVID-19
  12. PANTOPRAZOLE [Concomitant]
     Active Substance: PANTOPRAZOLE

REACTIONS (3)
  - Fibrin D dimer increased [Recovering/Resolving]
  - C-reactive protein increased [Recovering/Resolving]
  - General physical health deterioration [Recovering/Resolving]
